FAERS Safety Report 15283721 (Version 3)
Quarter: 2018Q4

REPORT INFORMATION
  Report Type: Spontaneous
  Country: US (occurrence: US)
  Receive Date: 20180816
  Receipt Date: 20181221
  Transmission Date: 20190204
  Serious: Yes (Other)
  Sender: FDA-Public Use
  Company Number: US-SA-2018SA224344

PATIENT
  Age: 62 Year
  Sex: Female
  Weight: 122 kg

DRUGS (4)
  1. PROTONIX [OMEPRAZOLE] [Concomitant]
     Dosage: UNK
     Dates: start: 2007
  2. LASIX [Concomitant]
     Active Substance: FUROSEMIDE
     Dosage: UNK
     Dates: start: 2006
  3. TAXOTERE [Suspect]
     Active Substance: DOCETAXEL
     Indication: BREAST CANCER FEMALE
     Dosage: UNK
     Route: 042
     Dates: start: 201205, end: 201205
  4. TAXOTERE [Suspect]
     Active Substance: DOCETAXEL
     Dosage: UNK
     Route: 042
     Dates: start: 201209, end: 201209

REACTIONS (1)
  - Alopecia [Recovering/Resolving]
